FAERS Safety Report 7145120 (Version 2)
Quarter: 2013Q1

REPORT INFORMATION
  Report Type: Spontaneous
  Country: GB (occurrence: GB)
  Receive Date: 20091009
  Receipt Date: 20130328
  Transmission Date: 20140127
  Serious: Yes (Other)
  Sender: FDA-Public Use
  Company Number: GB-RB-021242-09

PATIENT
  Sex: Male

DRUGS (2)
  1. SUBUTEX [Suspect]
     Indication: MATERNAL EXPOSURE DURING PREGNANCY
     Dosage: UNKNOWN DOSING INFORMATION.
     Route: 064
  2. SUBUTEX [Suspect]
     Indication: EXPOSURE DURING BREAST FEEDING
     Dosage: DOSING INFORMATION UNKNOWN.
     Route: 063

REACTIONS (4)
  - Convulsion neonatal [Unknown]
  - Drug withdrawal syndrome neonatal [Unknown]
  - Foetal exposure during pregnancy [Recovered/Resolved]
  - Exposure during breast feeding [Unknown]
